FAERS Safety Report 25400961 (Version 2)
Quarter: 2025Q3

REPORT INFORMATION
  Report Type: Spontaneous
  Country: JP (occurrence: JP)
  Receive Date: 20250605
  Receipt Date: 20250707
  Transmission Date: 20251021
  Serious: Yes (Other)
  Sender: REGENERON
  Company Number: JP-BAYER-2025A072435

PATIENT
  Age: 8 Decade
  Sex: Male

DRUGS (2)
  1. EYLEA [Suspect]
     Active Substance: AFLIBERCEPT
     Indication: Retinal vein occlusion
     Route: 031
     Dates: start: 20240729, end: 20240729
  2. EYLEA [Suspect]
     Active Substance: AFLIBERCEPT
     Indication: Cystoid macular oedema
     Route: 031
     Dates: start: 20241214, end: 20241214

REACTIONS (6)
  - Vitreous haemorrhage [Recovering/Resolving]
  - Retinal vasculitis [Recovered/Resolved with Sequelae]
  - Retinal artery occlusion [Unknown]
  - Visual acuity reduced [Recovering/Resolving]
  - Eye swelling [Recovering/Resolving]
  - Vitreous floaters [Recovering/Resolving]

NARRATIVE: CASE EVENT DATE: 20240807
